FAERS Safety Report 19278548 (Version 1)
Quarter: 2021Q2

REPORT INFORMATION
  Report Type: Spontaneous
  Country: US (occurrence: US)
  Receive Date: 20210520
  Receipt Date: 20210520
  Transmission Date: 20210717
  Serious: No
  Sender: FDA-Public Use
  Company Number: None

PATIENT
  Age: 88 Year
  Sex: Male

DRUGS (2)
  1. WARFARIN (WARFARIN NA (EXELAN) 5MG TAB) [Suspect]
     Active Substance: WARFARIN SODIUM
     Route: 048
     Dates: end: 20210226
  2. WARFARIN (WARFARIN NA (EXELAN) 5MG TAB) [Suspect]
     Active Substance: WARFARIN SODIUM
     Dosage: ?          OTHER ROUTE:IV?
     Dates: start: 20210216

REACTIONS (6)
  - Large intestinal obstruction [None]
  - Syncope [None]
  - Haemorrhage [None]
  - Biliary obstruction [None]
  - Atrioventricular block [None]
  - International normalised ratio decreased [None]

NARRATIVE: CASE EVENT DATE: 20210218
